FAERS Safety Report 11972685 (Version 1)
Quarter: 2016Q1

REPORT INFORMATION
  Report Type: Spontaneous
  Country: JP (occurrence: JP)
  Receive Date: 20160128
  Receipt Date: 20160128
  Transmission Date: 20160526
  Serious: Yes (Hospitalization, Other)
  Sender: FDA-Public Use
  Company Number: PHHY2016JP008884

PATIENT
  Age: 15 Year
  Sex: Male
  Weight: 60.1 kg

DRUGS (13)
  1. ETOPOSIDE. [Interacting]
     Active Substance: ETOPOSIDE
     Indication: RHABDOMYOSARCOMA
     Dosage: 100 MG/M2, UNK
     Route: 042
  2. WARFARIN [Interacting]
     Active Substance: WARFARIN
     Dosage: 2.5 MG, QD
     Route: 048
  3. APREPITANT. [Interacting]
     Active Substance: APREPITANT
     Indication: PROPHYLAXIS
     Dosage: 125 MG, UNK
     Route: 065
  4. MESNA. [Concomitant]
     Active Substance: MESNA
     Indication: PRODUCT USED FOR UNKNOWN INDICATION
     Dosage: 600 MG, Q6H
     Route: 042
  5. IFOSFAMIDE. [Interacting]
     Active Substance: IFOSFAMIDE
     Indication: RHABDOMYOSARCOMA
     Dosage: 1800 MG/M2, UNK
     Route: 042
  6. APREPITANT. [Interacting]
     Active Substance: APREPITANT
     Dosage: 80 MG, UNK
     Route: 065
  7. CYCLOPHOSPHAMIDE. [Concomitant]
     Active Substance: CYCLOPHOSPHAMIDE
     Indication: RHABDOMYOSARCOMA
     Dosage: 1200 MG/M2, UNK
     Route: 042
  8. DOXORUBICIN [Concomitant]
     Active Substance: DOXORUBICIN
     Indication: RHABDOMYOSARCOMA
     Dosage: 37.5 MG/M2, UNK
     Route: 042
  9. ONDANSETRON [Concomitant]
     Active Substance: ONDANSETRON
     Indication: PRODUCT USED FOR UNKNOWN INDICATION
     Dosage: 4 MG, Q12H
     Route: 042
  10. WARFARIN [Suspect]
     Active Substance: WARFARIN
     Indication: CEREBRAL ARTERY OCCLUSION
     Dosage: 2 MG, QD
     Route: 048
  11. VINCRISTINE [Concomitant]
     Active Substance: VINCRISTINE
     Indication: RHABDOMYOSARCOMA
     Dosage: 1.5 MG/M2, UNK
     Route: 042
  12. DEXAMETHASONE. [Concomitant]
     Active Substance: DEXAMETHASONE
     Indication: PRODUCT USED FOR UNKNOWN INDICATION
     Dosage: 3.3 MG, Q12H
     Route: 042
  13. FAMOTIDINE. [Concomitant]
     Active Substance: FAMOTIDINE
     Indication: PRODUCT USED FOR UNKNOWN INDICATION
     Dosage: 20 MG, Q12H
     Route: 042

REACTIONS (2)
  - International normalised ratio increased [Recovered/Resolved]
  - Drug interaction [Unknown]
